FAERS Safety Report 10470289 (Version 2)
Quarter: 2014Q4

REPORT INFORMATION
  Report Type: Report from Study
  Country: US (occurrence: US)
  Receive Date: 20140923
  Receipt Date: 20141104
  Transmission Date: 20150528
  Serious: Yes (Hospitalization)
  Sender: FDA-Public Use
  Company Number: US-SA-2014SA130220

PATIENT
  Age: 62 Year
  Sex: Female

DRUGS (4)
  1. LOVASTIN [Concomitant]
     Active Substance: LOVASTATIN
     Dates: start: 20141006
  2. LANTUS [Suspect]
     Active Substance: INSULIN GLARGINE
     Indication: TYPE 2 DIABETES MELLITUS
     Dosage: DOSE:38 UNIT(S)
     Route: 065
     Dates: start: 2000
  3. LOSARTAN [Concomitant]
     Active Substance: LOSARTAN
     Dates: start: 20141006
  4. METFORMIN [Concomitant]
     Active Substance: METFORMIN HYDROCHLORIDE
     Dates: start: 1994

REACTIONS (2)
  - Visual impairment [Unknown]
  - Cerebrovascular accident [Unknown]

NARRATIVE: CASE EVENT DATE: 201108
